FAERS Safety Report 6879946-0 (Version None)
Quarter: 2010Q3

REPORT INFORMATION
  Report Type: 
  Country: None (occurrence: None)
  Receive Date: 20100728
  Receipt Date: 20100707
  Transmission Date: 20110219
  Serious: Yes (Hospitalization)
  Sender: FDA-Public Use
  Company Number: JP-BRISTOL-MYERS SQUIBB COMPANY-14653596

PATIENT
  Age: 46 Year
  Sex: Female
  Weight: 71 kg

DRUGS (11)
  1. ABILIFY [Suspect]
     Indication: BIPOLAR DISORDER
     Dosage: BLINDED.
     Route: 048
     Dates: start: 20090515, end: 20090527
  2. PARACETAMOL [Suspect]
     Indication: HEADACHE
     Dosage: REG1-16MAY-17MAY/2DAYS REG2-21MAY/D REG3-22MAY/BID REG4-23MAY/D REG5-27MAY/D
     Route: 048
     Dates: start: 20090516, end: 20090527
  3. MILTAX [Concomitant]
     Dates: start: 20090508
  4. PREDONINE [Concomitant]
     Dates: start: 20090527
  5. LITHIUM CARBONATE [Concomitant]
     Dosage: DOSE INCREASED TO 600MG/D THEN 800MG;600MG/D STARTED ON 01-JUN-09
     Dates: start: 20090527
  6. FLUNITRAZEPAM [Concomitant]
     Indication: GASTRITIS PROPHYLAXIS
     Dates: start: 20090527
  7. GASTER D [Concomitant]
     Indication: GASTRITIS PROPHYLAXIS
     Dates: start: 20090527
  8. DIFLORASONE OINTMENT [Concomitant]
     Dosage: FORM-CREAM.
     Dates: start: 20090527
  9. CLONAZEPAM [Concomitant]
     Dates: start: 20090529
  10. GASMOTIN [Concomitant]
     Dates: start: 20090522, end: 20090527
  11. PIPAMPERONE HCL [Concomitant]
     Dates: start: 20090701

REACTIONS (3)
  - DRUG ERUPTION [None]
  - MANIA [None]
  - RHABDOMYOLYSIS [None]
